FAERS Safety Report 24916367 (Version 1)
Quarter: 2025Q1

REPORT INFORMATION
  Report Type: Spontaneous
  Country: US (occurrence: US)
  Receive Date: 20250203
  Receipt Date: 20250203
  Transmission Date: 20250408
  Serious: Yes (Hospitalization)
  Sender: INTRA-CELLULAR THERAPIES
  Company Number: US-INTRA-CELLULAR THERAPIES, INC.-2025ICT00069

PATIENT
  Sex: Female

DRUGS (5)
  1. CAPLYTA [Suspect]
     Active Substance: LUMATEPERONE
     Indication: Schizophrenia
  2. CAPLYTA [Suspect]
     Active Substance: LUMATEPERONE
     Indication: Bipolar disorder
  3. CAPLYTA [Suspect]
     Active Substance: LUMATEPERONE
     Indication: Psychotic disorder
  4. CAPLYTA [Suspect]
     Active Substance: LUMATEPERONE
     Indication: Anxiety
  5. BUSPAR [Concomitant]
     Active Substance: BUSPIRONE HYDROCHLORIDE

REACTIONS (2)
  - Stoma closure [Not Recovered/Not Resolved]
  - Intentional product misuse [Not Recovered/Not Resolved]
